FAERS Safety Report 10432729 (Version 15)
Quarter: 2018Q4

REPORT INFORMATION
  Report Type: Spontaneous
  Country: US (occurrence: US)
  Receive Date: 20140905
  Receipt Date: 20181128
  Transmission Date: 20190204
  Serious: Yes (Disabling, Other)
  Sender: FDA-Public Use
  Company Number: US-009507513-1408USA016437

PATIENT
  Sex: Male
  Weight: 60.32 kg

DRUGS (6)
  1. PROPECIA [Suspect]
     Active Substance: FINASTERIDE
     Indication: ALOPECIA
     Dosage: 1 MG, QD
     Route: 048
     Dates: start: 20090818
  2. FINASTERIDE. [Suspect]
     Active Substance: FINASTERIDE
     Dosage: 5 MG, UNK
     Route: 048
     Dates: start: 20120106
  3. FINASTERIDE. [Suspect]
     Active Substance: FINASTERIDE
     Indication: ALOPECIA
     Dosage: HALF A TABLET DAILY
     Route: 048
  4. FINASTERIDE. [Suspect]
     Active Substance: FINASTERIDE
     Indication: ALOPECIA
     Dosage: UNK, UNKNOWN
     Route: 048
  5. PROSCAR [Suspect]
     Active Substance: FINASTERIDE
     Indication: ALOPECIA
     Dosage: UNK, UNKNOWN
     Route: 048
  6. FINASTERIDE. [Suspect]
     Active Substance: FINASTERIDE
     Dosage: A QUARTER OF A TABLET DAILY
     Route: 048

REACTIONS (43)
  - Anxiety [Not Recovered/Not Resolved]
  - Acne [Not Recovered/Not Resolved]
  - Rhinitis perennial [Not Recovered/Not Resolved]
  - Arthralgia [Unknown]
  - Papilloma viral infection [Unknown]
  - Chlamydial infection [Unknown]
  - Drug hypersensitivity [Unknown]
  - Arthralgia [Unknown]
  - Hypogonadism [Unknown]
  - Gynaecomastia [Unknown]
  - Depression [Not Recovered/Not Resolved]
  - Pneumonia [Unknown]
  - Skin papilloma [Unknown]
  - Blood testosterone decreased [Unknown]
  - Fatigue [Not Recovered/Not Resolved]
  - Emotional disorder [Not Recovered/Not Resolved]
  - Pain [Unknown]
  - Paraesthesia [Not Recovered/Not Resolved]
  - Keloid scar [Unknown]
  - Breathing-related sleep disorder [Unknown]
  - Adverse event [Unknown]
  - Memory impairment [Unknown]
  - Erectile dysfunction [Not Recovered/Not Resolved]
  - Libido decreased [Not Recovered/Not Resolved]
  - Nasal septum deviation [Not Recovered/Not Resolved]
  - Anogenital warts [Unknown]
  - Gonorrhoea [Unknown]
  - Vitamin D increased [Unknown]
  - Affective disorder [Unknown]
  - Obsessive-compulsive disorder [Unknown]
  - Erythema [Unknown]
  - Dysuria [Unknown]
  - Neoplasm malignant [Unknown]
  - Sexual dysfunction [Unknown]
  - 5-alpha-reductase deficiency [Unknown]
  - Incorrect dose administered [Unknown]
  - Product administration error [Unknown]
  - Arthritis [Unknown]
  - Ingrown hair [Unknown]
  - Orgasmic sensation decreased [Unknown]
  - Anogenital warts [Unknown]
  - Body fat disorder [Unknown]
  - Lipodystrophy acquired [Unknown]

NARRATIVE: CASE EVENT DATE: 2010
